FAERS Safety Report 24466470 (Version 1)
Quarter: 2024Q4

REPORT INFORMATION
  Report Type: Report from Study
  Country: US (occurrence: US)
  Receive Date: 20241018
  Receipt Date: 20241018
  Transmission Date: 20250115
  Serious: No
  Sender: ROCHE
  Company Number: US-ROCHE-3542489

PATIENT
  Age: 45 Year
  Sex: Female

DRUGS (15)
  1. XOLAIR [Suspect]
     Active Substance: OMALIZUMAB
     Indication: Idiopathic urticaria
     Route: 058
     Dates: start: 2021
  2. XOLAIR [Suspect]
     Active Substance: OMALIZUMAB
     Indication: Idiopathic urticaria
     Route: 058
     Dates: start: 20240425
  3. MONTELUKAST [Concomitant]
     Active Substance: MONTELUKAST
     Route: 048
     Dates: start: 20240503
  4. HYDROXYZINE HYDROCHLORIDE [Concomitant]
     Active Substance: HYDROXYZINE HYDROCHLORIDE
     Route: 048
     Dates: start: 20230916
  5. BETAMETHASONE [Concomitant]
     Active Substance: BETAMETHASONE
     Route: 061
  6. CETIRIZINE HYDROCHLORIDE [Concomitant]
     Active Substance: CETIRIZINE HYDROCHLORIDE
     Route: 048
  7. CLOBETASOL [Concomitant]
     Active Substance: CLOBETASOL
     Dates: start: 20240409
  8. CLOTRIMAZOLE [Concomitant]
     Active Substance: CLOTRIMAZOLE
     Dates: start: 20231121
  9. AUVI-Q [Concomitant]
     Active Substance: EPINEPHRINE
  10. LIDEX [Concomitant]
     Active Substance: FLUOCINONIDE
     Route: 061
     Dates: start: 20230916
  11. IBUPROFEN [Concomitant]
     Active Substance: IBUPROFEN
     Route: 048
     Dates: start: 20170405
  12. SEMAGLUTIDE [Concomitant]
     Active Substance: SEMAGLUTIDE
     Route: 058
     Dates: start: 20240308
  13. TACROLIMUS [Concomitant]
     Active Substance: TACROLIMUS
  14. TOPIRAMATE [Concomitant]
     Active Substance: TOPIRAMATE
     Route: 048
     Dates: start: 20240411
  15. KENALOG [Concomitant]
     Active Substance: TRIAMCINOLONE ACETONIDE
     Route: 061
     Dates: start: 20181120

REACTIONS (11)
  - Off label use [Unknown]
  - Skin plaque [Unknown]
  - Urticaria [Unknown]
  - Nasal congestion [Unknown]
  - Erythema [Unknown]
  - Pruritus [Unknown]
  - Throat irritation [Unknown]
  - Sneezing [Unknown]
  - Papule [Unknown]
  - Skin hyperpigmentation [Unknown]
  - Off label use [Unknown]
